FAERS Safety Report 18514761 (Version 3)
Quarter: 2021Q2

REPORT INFORMATION
  Report Type: Report from Study
  Country: US (occurrence: US)
  Receive Date: 20201118
  Receipt Date: 20210604
  Transmission Date: 20210717
  Serious: Yes (Other)
  Sender: FDA-Public Use
  Company Number: NVSC2020US307646

PATIENT
  Age: 31 Year
  Sex: Female

DRUGS (2)
  1. GILENYA [Suspect]
     Active Substance: FINGOLIMOD HYDROCHLORIDE
     Indication: RELAPSING-REMITTING MULTIPLE SCLEROSIS
     Dosage: 0.5 MG, QD
     Route: 048
     Dates: start: 20190806
  2. GILENYA [Suspect]
     Active Substance: FINGOLIMOD HYDROCHLORIDE
     Dosage: 0.5 MG, QD
     Route: 048
     Dates: start: 20190816

REACTIONS (7)
  - Nervous system disorder [Unknown]
  - Amnesia [Unknown]
  - Condition aggravated [Unknown]
  - Mental disorder [Unknown]
  - Narcolepsy [Unknown]
  - Stress [Unknown]
  - Weight increased [Unknown]

NARRATIVE: CASE EVENT DATE: 20210227
